FAERS Safety Report 9697876 (Version 1)
Quarter: 2013Q4

REPORT INFORMATION
  Report Type: Spontaneous
  Country: FR (occurrence: FR)
  Receive Date: 20131120
  Receipt Date: 20131120
  Transmission Date: 20140711
  Serious: Yes (Death, Other)
  Sender: FDA-Public Use
  Company Number: FR-009507513-1311FRA005112

PATIENT
  Sex: 0

DRUGS (2)
  1. EMEND [Suspect]
  2. BEXAROTENE [Interacting]

REACTIONS (5)
  - Renal failure acute [Fatal]
  - Dehydration [Fatal]
  - Hypernatraemia [Unknown]
  - Drug interaction [Unknown]
  - Off label use [Unknown]
